FAERS Safety Report 5569810-1 (Version None)
Quarter: 2007Q4

REPORT INFORMATION
  Report Type: 
  Country: None (occurrence: None)
  Receive Date: 20071217
  Receipt Date: 20071129
  Transmission Date: 20080405
  Serious: Yes (Death, Life-Threatening, Hospitalization)
  Sender: FDA-Public Use
  Company Number: 2007US002716

PATIENT
  Age: 51 Year
  Sex: Male
  Weight: 77.1 kg

DRUGS (18)
  1. AMEVIVE [Suspect]
     Indication: GRAFT VERSUS HOST DISEASE
     Dosage: 0.1 MG/KG, WEEKLY, IV BOLUS
     Route: 040
     Dates: start: 20060421, end: 20060427
  2. METHYLPREDNISOLONE [Concomitant]
  3. IMIPENME (IMIPENEM) [Concomitant]
  4. PENICILLIN VK [Concomitant]
  5. CASPOFUNGIN [Concomitant]
  6. GANCICLOVIR [Concomitant]
  7. VORICONAZOLE (VORICONAZOLE) [Concomitant]
  8. ATENOLOL [Concomitant]
  9. ALTACE [Concomitant]
  10. FOLATE SODIUM (FOLATE SODIUM) [Concomitant]
  11. BACTRIM DS (SULFAMETHAXAZOLE, TRIMETHOPRIM) [Concomitant]
  12. FENTANYL [Concomitant]
  13. OXYCODONE HCL [Concomitant]
  14. EFFEXOR XR [Concomitant]
  15. DIFLUCAN [Concomitant]
  16. VALTREX [Concomitant]
  17. CALCIUM WITH VITAMIN D (ERGOCALCIFEROL, CALCIUM SODIUM LACTATE, CALCIU [Concomitant]
  18. MULTI-VIT (VITAMINS NOS) [Concomitant]

REACTIONS (13)
  - BLOOD GLUCOSE INCREASED [None]
  - BLOOD SODIUM DECREASED [None]
  - BRONCHOPULMONARY ASPERGILLOSIS [None]
  - CYTOMEGALOVIRUS ANTIBODY POSITIVE [None]
  - HAEMOGLOBIN DECREASED [None]
  - MYELOMA RECURRENCE [None]
  - OXYGEN SATURATION DECREASED [None]
  - PLATELET COUNT DECREASED [None]
  - RESPIRATORY DISTRESS [None]
  - RESPIRATORY FAILURE [None]
  - TACHYCARDIA [None]
  - TACHYPNOEA [None]
  - WHITE BLOOD CELL COUNT DECREASED [None]
